FAERS Safety Report 11850183 (Version 1)
Quarter: 2015Q4

REPORT INFORMATION
  Report Type: Spontaneous
  Country: US (occurrence: US)
  Receive Date: 20151218
  Receipt Date: 20151218
  Transmission Date: 20160305
  Serious: No
  Sender: FDA-Public Use
  Company Number: US-JNJFOC-20151201470

PATIENT
  Age: 8 Month
  Sex: Female
  Weight: 5.9 kg

DRUGS (4)
  1. CHILDRENS ZYRTEC [Concomitant]
     Active Substance: CETIRIZINE HYDROCHLORIDE
     Indication: NASOPHARYNGITIS
     Dosage: 2.5ML AT 7AM AND 2.5ML AT 7PM
     Route: 048
     Dates: start: 20151130
  2. CHILDRENS ZYRTEC [Concomitant]
     Active Substance: CETIRIZINE HYDROCHLORIDE
     Indication: HYPERSENSITIVITY
     Dosage: 2.5ML AT 7AM AND 2.5ML AT 7PM
     Route: 048
     Dates: start: 20151130
  3. INFANTS TYLENOL [Suspect]
     Active Substance: ACETAMINOPHEN
     Indication: MULTIPLE ALLERGIES
     Dosage: AT 7PM
     Route: 048
     Dates: start: 20151130
  4. INFANTS TYLENOL [Suspect]
     Active Substance: ACETAMINOPHEN
     Indication: NASOPHARYNGITIS
     Dosage: AT 7PM
     Route: 048
     Dates: start: 20151130

REACTIONS (2)
  - Product use issue [Unknown]
  - Off label use [Unknown]

NARRATIVE: CASE EVENT DATE: 20151130
